FAERS Safety Report 23797498 (Version 1)
Quarter: 2024Q2

REPORT INFORMATION
  Report Type: Report from Study
  Country: US (occurrence: US)
  Receive Date: 20240430
  Receipt Date: 20240430
  Transmission Date: 20240716
  Serious: Yes (Other)
  Sender: FDA-Public Use
  Company Number: US-ARGENX-2024-ARGX-US002031

PATIENT

DRUGS (1)
  1. VYVGART HYTRULO [Suspect]
     Active Substance: EFGARTIGIMOD ALFA\HYALURONIDASE-QVFC
     Indication: Myasthenia gravis
     Dosage: 1008 MG / 11,200 UNITS
     Route: 058
     Dates: start: 20240320

REACTIONS (8)
  - Myasthenia gravis [Unknown]
  - Migraine [Unknown]
  - Fatigue [Unknown]
  - Acne [Unknown]
  - Eczema [Unknown]
  - Injection site swelling [Unknown]
  - Erythema [Unknown]
  - Pain [Unknown]

NARRATIVE: CASE EVENT DATE: 20240320
